FAERS Safety Report 11545992 (Version 1)
Quarter: 2015Q3

REPORT INFORMATION
  Report Type: Report from Study
  Country: CN (occurrence: CN)
  Receive Date: 20150924
  Receipt Date: 20150924
  Transmission Date: 20151125
  Serious: Yes (Death, Other)
  Sender: FDA-Public Use
  Company Number: CN-PFIZER INC-2015317011

PATIENT
  Age: 39 Year
  Sex: Male

DRUGS (2)
  1. CYCLOSPORINE A [Concomitant]
     Active Substance: CYCLOSPORINE
     Indication: KIDNEY TRANSPLANT REJECTION
     Dosage: 300 MG, DAILY
     Route: 042
  2. METHYLPREDNISOLONE SODIUM SUCCINATE. [Suspect]
     Active Substance: METHYLPREDNISOLONE SODIUM SUCCINATE
     Indication: KIDNEY TRANSPLANT REJECTION
     Dosage: 500 MG, DAILY
     Route: 042

REACTIONS (3)
  - Disease recurrence [Not Recovered/Not Resolved]
  - Mucormycosis [Fatal]
  - Pulmonary mycosis [Not Recovered/Not Resolved]
